FAERS Safety Report 9418655 (Version 1)
Quarter: 2013Q3

REPORT INFORMATION
  Report Type: Spontaneous
  Country: US (occurrence: US)
  Receive Date: 20130725
  Receipt Date: 20130725
  Transmission Date: 20140515
  Serious: No
  Sender: FDA-Public Use
  Company Number: US-B.I. PHARMACEUTICALS,INC./RIDGEFIELD-2013-BI-21720BP

PATIENT
  Age: 69 Year
  Sex: Female
  Weight: 66 kg

DRUGS (9)
  1. COMBIVENT [Suspect]
     Indication: CHRONIC OBSTRUCTIVE PULMONARY DISEASE
     Dosage: STRENGTH: 20 MCG / 100 MCG; DAILY DOSE: 240 MCG/1200 MG
     Route: 055
     Dates: start: 20130703, end: 20130715
  2. COMBIVENT [Suspect]
     Dosage: STRENGTH: 20 MCG / 100 MCG; DAILY DOSE: 240 MCG/1200 MG
     Route: 055
     Dates: start: 20130721, end: 20130721
  3. COMBIVENT [Suspect]
     Indication: CHRONIC OBSTRUCTIVE PULMONARY DISEASE
     Dosage: STRENGTH: 18 MCG / 103 MCG; DAILY DOSE: 216 MCG/1236 MG
     Route: 055
     Dates: end: 20130702
  4. SPIRIVA [Suspect]
     Indication: CHRONIC OBSTRUCTIVE PULMONARY DISEASE
     Dosage: 18 MG
     Route: 055
  5. AMLODIPINE/HCTZ [Concomitant]
     Indication: HYPERTENSION
     Dosage: (TABLET) STRENGTH: 5/50; DAILY DOSE: 5MG /50MG
     Route: 048
  6. LORAZEPAM [Concomitant]
     Indication: ANXIETY
     Dosage: 4 MG
     Route: 048
  7. CITALOPRAM [Concomitant]
     Indication: DEPRESSION
     Dosage: 15 MG
     Route: 048
  8. ADVAIR [Concomitant]
     Indication: CHRONIC OBSTRUCTIVE PULMONARY DISEASE
  9. POTASSIUM CL [Concomitant]
     Indication: BLOOD POTASSIUM DECREASED

REACTIONS (3)
  - Rash [Not Recovered/Not Resolved]
  - Drug prescribing error [Not Recovered/Not Resolved]
  - Drug prescribing error [Recovered/Resolved]
